FAERS Safety Report 6047094-8 (Version None)
Quarter: 2009Q1

REPORT INFORMATION
  Report Type: 
  Country: None (occurrence: None)
  Receive Date: 20090121
  Receipt Date: 20090115
  Transmission Date: 20090719
  Serious: No
  Sender: FDA-Public Use
  Company Number: A-US2008-22421

PATIENT
  Age: 86 Year
  Sex: Female
  Weight: 57.6 kg

DRUGS (2)
  1. TRACLEER [Suspect]
     Indication: PULMONARY HYPERTENSION
     Dosage: 62.5 MG, BID, ORAL
     Route: 048
     Dates: start: 20080930
  2. PREDNISONE TAB [Suspect]
     Dates: start: 20080901

REACTIONS (1)
  - TREMOR [None]
